FAERS Safety Report 5163810-1 (Version None)
Quarter: 2006Q4

REPORT INFORMATION
  Report Type: 
  Country: None (occurrence: None)
  Receive Date: 20061124
  Receipt Date: 20061113
  Transmission Date: 20070319
  Serious: Yes (Death, Other)
  Sender: FDA-Public Use
  Company Number: 2006143673

PATIENT
  Sex: Male

DRUGS (1)
  1. CELEBREX [Suspect]
     Indication: PAIN
     Dosage: 400 MG (400 MG,1 IN 1 D), ORAL
     Route: 048
     Dates: start: 20040301

REACTIONS (3)
  - CEREBROVASCULAR DISORDER [None]
  - INJURY [None]
  - MYOCARDIAL INFARCTION [None]
